FAERS Safety Report 20153157 (Version 9)
Quarter: 2022Q2

REPORT INFORMATION
  Report Type: Report from Study
  Country: KR (occurrence: KR)
  Receive Date: 20211206
  Receipt Date: 20220429
  Transmission Date: 20220721
  Serious: Yes (Hospitalization, Other)
  Sender: FDA-Public Use
  Company Number: KR-002147023-NVSC2021KR271586

PATIENT

DRUGS (29)
  1. RUXOLITINIB [Suspect]
     Active Substance: RUXOLITINIB
     Indication: Myelofibrosis
     Dosage: 5 MG, BID
     Route: 048
     Dates: start: 20211012, end: 20211123
  2. UNASAN [Concomitant]
     Indication: Bursitis
     Dosage: 375 MG, QD
     Route: 048
     Dates: start: 20211018
  3. REBAMIPIDE [Concomitant]
     Active Substance: REBAMIPIDE
     Indication: Prophylaxis
     Dosage: 100 MG, QD
     Route: 048
     Dates: start: 20211018
  4. BERAPROST [Concomitant]
     Active Substance: BERAPROST
     Indication: Peripheral arterial occlusive disease
     Dosage: 20 UG, QD
     Route: 048
     Dates: start: 20211018
  5. NEURONTIN [Concomitant]
     Active Substance: GABAPENTIN
     Indication: Peripheral arterial occlusive disease
     Dosage: 600 MG, QD
     Route: 048
     Dates: start: 20130325
  6. NEURONTIN [Concomitant]
     Active Substance: GABAPENTIN
     Indication: Diabetic neuropathy
  7. SARPOGRELATE HYDROCHLORIDE [Concomitant]
     Active Substance: SARPOGRELATE HYDROCHLORIDE
     Indication: Peripheral arterial occlusive disease
     Dosage: 300 MG, QD
     Route: 048
     Dates: start: 20211018
  8. DILTIAZEM [Concomitant]
     Active Substance: DILTIAZEM
     Indication: Product used for unknown indication
     Dosage: 90 MG, QD
     Route: 048
     Dates: start: 20211123, end: 20211130
  9. LYRICA [Concomitant]
     Active Substance: PREGABALIN
     Indication: Diabetes mellitus
     Dosage: 150 MG, QD
     Route: 065
     Dates: start: 20140524
  10. LYRICA [Concomitant]
     Active Substance: PREGABALIN
     Dosage: 150 MG (2 DF)
     Route: 048
     Dates: start: 20211123, end: 20211130
  11. RENALMIN [Concomitant]
     Indication: Chronic kidney disease
     Dosage: 1 DOSAGE FORM, QD (1000 TAB PER DAY)
     Route: 048
     Dates: start: 20140917
  12. RENALMIN [Concomitant]
     Indication: Prophylaxis
     Dosage: 1 DOSAGE FORM
     Route: 048
     Dates: start: 20211123, end: 20211130
  13. SODIUM BICARBONATE [Concomitant]
     Active Substance: SODIUM BICARBONATE
     Indication: Product used for unknown indication
     Dosage: 500 MG (2 TAB)
     Route: 048
     Dates: start: 20211123, end: 20211130
  14. CALCIUM POLYSTYRENE SULFONATE [Concomitant]
     Active Substance: CALCIUM POLYSTYRENE SULFONATE
     Indication: Prophylaxis
     Dosage: 5 G, QD
     Route: 065
     Dates: start: 20201123
  15. CALCIUM POLYSTYRENE SULFONATE [Concomitant]
     Active Substance: CALCIUM POLYSTYRENE SULFONATE
     Dosage: 5 G (1 PACK)
     Route: 048
     Dates: start: 20211123, end: 20211130
  16. SALON [Concomitant]
     Indication: Product used for unknown indication
     Dosage: 125 MG
     Route: 042
     Dates: start: 20211123, end: 20211130
  17. CEFPODOXIME [Concomitant]
     Active Substance: CEFPODOXIME
     Indication: Product used for unknown indication
     Dosage: 100 MG (2 TAB)
     Route: 048
     Dates: start: 20211123, end: 20211130
  18. INSULIN LISPRO [Concomitant]
     Active Substance: INSULIN LISPRO
     Indication: Product used for unknown indication
     Dosage: 300 IU
     Route: 058
     Dates: start: 20211123, end: 20211130
  19. NUCYNTA [Concomitant]
     Active Substance: TAPENTADOL HYDROCHLORIDE
     Indication: Product used for unknown indication
     Dosage: 100 MG, QD
     Route: 048
     Dates: start: 20191029
  20. HERBEN SR [Concomitant]
     Indication: Hypertension
     Dosage: 90 MG, QD
     Route: 048
     Dates: start: 20191103
  21. VANCOMYCIN HYDROCHLORIDE [Concomitant]
     Active Substance: VANCOMYCIN HYDROCHLORIDE
     Indication: Product used for unknown indication
     Dosage: 4 DOSAGE FORM
     Route: 048
  22. R-THIOCTIC ACID TROMETAMINE [Concomitant]
     Indication: Product used for unknown indication
     Dosage: 1 DOSAGE FORM
     Route: 048
  23. LINAGLIPTIN [Concomitant]
     Active Substance: LINAGLIPTIN
     Indication: Product used for unknown indication
     Dosage: 1 DOSAGE FORM
     Route: 048
  24. AMLODIPINE BESYLATE [Concomitant]
     Active Substance: AMLODIPINE BESYLATE
     Indication: Product used for unknown indication
     Dosage: 1 DOSAGE FORM
     Route: 048
  25. GABAPENTIN [Concomitant]
     Active Substance: GABAPENTIN
     Indication: Product used for unknown indication
     Dosage: 2 DOSAGE FORM
     Route: 048
  26. VYTORIN [Concomitant]
     Active Substance: EZETIMIBE\SIMVASTATIN
     Indication: Prophylaxis
     Dosage: 1 DOSAGE FORM (10/10 MG)
     Route: 048
     Dates: start: 20160607
  27. TASNA [Concomitant]
     Indication: Product used for unknown indication
     Dosage: 500 MG, QD
     Route: 048
     Dates: start: 20211123
  28. ASPIRIN [Concomitant]
     Active Substance: ASPIRIN
     Indication: Product used for unknown indication
     Dosage: 1 G, QD
     Route: 042
     Dates: start: 20211123
  29. HUMALOG MIX75/25 [Concomitant]
     Active Substance: INSULIN LISPRO
     Indication: Product used for unknown indication
     Dosage: 100 IU (KWIK PEN)
     Route: 058

REACTIONS (10)
  - Splenomegaly [Unknown]
  - Chronic obstructive pulmonary disease [Unknown]
  - Emphysema [Unknown]
  - Cystic lung disease [Unknown]
  - Cerebral atrophy [Unknown]
  - Pleural fibrosis [Not Recovered/Not Resolved]
  - Pneumonia [Recovered/Resolved with Sequelae]
  - Pneumonia [Recovered/Resolved]
  - Radiation fibrosis [Unknown]
  - Bronchiectasis [Recovering/Resolving]

NARRATIVE: CASE EVENT DATE: 20211123
